FAERS Safety Report 20530309 (Version 2)
Quarter: 2022Q2

REPORT INFORMATION
  Report Type: Spontaneous
  Country: US (occurrence: None)
  Receive Date: 20220301
  Receipt Date: 20220412
  Transmission Date: 20220721
  Serious: No
  Sender: FDA-Public Use
  Company Number: 2022A070975

PATIENT
  Sex: Male
  Weight: 145.2 kg

DRUGS (1)
  1. BUDESONIDE\FORMOTEROL\GLYCOPYRRONIUM [Suspect]
     Active Substance: BUDESONIDE\FORMOTEROL\GLYCOPYRRONIUM
     Indication: Dyspnoea
     Dosage: 160 MCG-9 MCG- 4.8 MCG 2 PUFFS IN THE MORNING AND 2 PUFFS AT NIGHT
     Route: 055

REACTIONS (5)
  - Eye disorder [Not Recovered/Not Resolved]
  - Intentional device misuse [Unknown]
  - Incorrect dose administered by device [Unknown]
  - Wrong technique in device usage process [Unknown]
  - Device malfunction [Unknown]
